FAERS Safety Report 19069994 (Version 1)
Quarter: 2021Q1

REPORT INFORMATION
  Report Type: Spontaneous
  Country: GB (occurrence: GB)
  Receive Date: 20210329
  Receipt Date: 20210329
  Transmission Date: 20210420
  Serious: Yes (Other)
  Sender: FDA-Public Use
  Company Number: GB-ASCEND THERAPEUTICS US, LLC-2108556

PATIENT
  Age: 42 Year
  Sex: Female

DRUGS (4)
  1. ESTROGEL [Suspect]
     Active Substance: ESTRADIOL
     Indication: HORMONE REPLACEMENT THERAPY
     Route: 065
     Dates: start: 20201201, end: 20210108
  2. ESTRADIOL, NOS (ESTRADIOL) [Suspect]
     Active Substance: ESTRADIOL
     Route: 065
     Dates: start: 20201201, end: 20210108
  3. ESTROGEL [Suspect]
     Active Substance: ESTRADIOL
  4. UTOVLAN (NORETHISTERONE) [Concomitant]
     Route: 065

REACTIONS (1)
  - Drug ineffective [Recovered/Resolved]
